FAERS Safety Report 24648767 (Version 2)
Quarter: 2025Q1

REPORT INFORMATION
  Report Type: Report from Study
  Country: US (occurrence: US)
  Receive Date: 20241121
  Receipt Date: 20250220
  Transmission Date: 20250408
  Serious: Yes (Other)
  Sender: DELCATH SYSTEMS
  Company Number: US-DELCATH SYSTEMS-DELC-000004

PATIENT
  Age: 85 Year
  Sex: Female

DRUGS (1)
  1. HEPZATO [Suspect]
     Active Substance: MELPHALAN
     Indication: Metastases to liver
     Route: 013
     Dates: start: 20241022

REACTIONS (2)
  - Anaemia [Unknown]
  - Post procedural haemorrhage [Unknown]

NARRATIVE: CASE EVENT DATE: 20241023
